FAERS Safety Report 7213401-3 (Version None)
Quarter: 2011Q1

REPORT INFORMATION
  Report Type: 
  Country: None (occurrence: None)
  Receive Date: 20110106
  Receipt Date: 20101230
  Transmission Date: 20110831
  Serious: Yes (Other)
  Sender: FDA-Public Use
  Company Number: US-TEVA-247765USA

PATIENT
  Sex: Female

DRUGS (2)
  1. CLARAVIS [Suspect]
     Dosage: SATURDAY AND SUNDAY
     Dates: start: 20100516
  2. CLARAVIS [Suspect]
     Dosage: MONDAY TO FRIDAY
     Dates: start: 20100516, end: 20100902

REACTIONS (1)
  - UNINTENDED PREGNANCY [None]
